FAERS Safety Report 5024919-6 (Version None)
Quarter: 2006Q2

REPORT INFORMATION
  Report Type: 
  Country: None (occurrence: None)
  Receive Date: 20060426
  Receipt Date: 20060222
  Transmission Date: 20061013
  Serious: Yes (Other)
  Sender: FDA-Public Use
  Company Number: 2006027006

PATIENT
  Age: 50 Year
  Sex: Female
  Weight: 53.5244 kg

DRUGS (4)
  1. LYRICA [Suspect]
     Indication: FIBROMYALGIA
     Dosage: 50 MG (50 MG, 1 IN 1 D), ORAL
     Route: 048
     Dates: start: 20060101
  2. LYRICA [Suspect]
     Indication: PAIN
     Dosage: 50 MG (50 MG, 1 IN 1 D), ORAL
     Route: 048
     Dates: start: 20060101
  3. CALCIUM (CALCIUM) [Concomitant]
  4. SOLARAY PHYTOESTROGEN (CIMICIFUGA RACEMOSA ROOT, SOY ISOFLAVONES, WILD [Concomitant]

REACTIONS (3)
  - DIZZINESS [None]
  - FEELING DRUNK [None]
  - FIBROMYALGIA [None]
